FAERS Safety Report 6216450-7 (Version None)
Quarter: 2009Q2

REPORT INFORMATION
  Report Type: 
  Country: None (occurrence: None)
  Receive Date: 20090605
  Receipt Date: 20090527
  Transmission Date: 20091009
  Serious: Yes (Other)
  Sender: FDA-Public Use
  Company Number: GB-AVENTIS-200915545GDDC

PATIENT
  Age: 74 Year
  Sex: Male

DRUGS (6)
  1. LEFLUNOMIDE [Suspect]
     Indication: POLYMYALGIA RHEUMATICA
     Route: 048
     Dates: start: 20090427, end: 20090428
  2. ASPIRIN [Concomitant]
     Route: 048
  3. CARBAMAZEPINE [Concomitant]
     Indication: EPILEPSY
     Route: 048
  4. OMEPRAZOLE [Concomitant]
     Route: 048
  5. PREDNISOLONE [Concomitant]
     Indication: POLYMYALGIA RHEUMATICA
     Route: 048
  6. SIMVASTATIN [Concomitant]
     Route: 048

REACTIONS (1)
  - EPILEPSY [None]
